FAERS Safety Report 22266360 (Version 1)
Quarter: 2023Q2

REPORT INFORMATION
  Report Type: Spontaneous
  Country: KR (occurrence: KR)
  Receive Date: 20230428
  Receipt Date: 20230428
  Transmission Date: 20230721
  Serious: Yes (Hospitalization, Other)
  Sender: FDA-Public Use
  Company Number: KR-APIL-2313029US

PATIENT
  Sex: Male
  Weight: 62.6 kg

DRUGS (13)
  1. SILODOSIN [Suspect]
     Active Substance: SILODOSIN
     Indication: Benign prostatic hyperplasia
     Dosage: 1 DF, QD
     Dates: start: 20221109
  2. ANAGLIPTIN [Concomitant]
     Active Substance: ANAGLIPTIN
     Indication: Type 2 diabetes mellitus
     Dosage: 100 MG, BID
     Route: 048
     Dates: start: 20230314
  3. CHOLICERIN [Concomitant]
     Indication: Cerebral disorder
     Dosage: 1 DF, QD
     Dates: start: 202212
  4. CLAUDEL [Concomitant]
     Indication: Arteriosclerosis
     Dosage: 1 DF, QD
     Dates: start: 20220413
  5. CREAZIN [Concomitant]
     Indication: Dyslipidaemia
     Dosage: 1 DF, QD
     Dates: start: 20200730
  6. LETOPRA [Concomitant]
     Indication: Gastritis
     Dosage: 1 DF, QD
     Dates: start: 20190903
  7. LEVOTENSION [Concomitant]
     Indication: Hypertension
     Dosage: UNK
     Dates: start: 20200730
  8. RECOMID SR [Concomitant]
     Indication: Gastritis
     Dosage: 1 DF, QD
     Dates: start: 20221221
  9. PROPIVERINE [Concomitant]
     Active Substance: PROPIVERINE
     Indication: Benign prostatic hyperplasia
     Dosage: 1 DF, QD
     Dates: start: 20221109
  10. UREMIN [Concomitant]
     Indication: Nocturia
     Dosage: 0.5 DF, QD
     Dates: start: 20210708
  11. DIABEX [Concomitant]
     Active Substance: METFORMIN HYDROCHLORIDE
     Indication: Type 2 diabetes mellitus
     Dosage: 1 DF, QD
     Dates: start: 20221221
  12. EMPAGLIFLOZIN\METFORMIN HYDROCHLORIDE [Concomitant]
     Active Substance: EMPAGLIFLOZIN\METFORMIN HYDROCHLORIDE
     Indication: Type 2 diabetes mellitus
     Dosage: 1 DF, BID
     Dates: start: 20230228
  13. PLACEBO [Concomitant]
     Active Substance: UNSPECIFIED INGREDIENT
     Dosage: UNK
     Route: 048
     Dates: start: 20230228

REACTIONS (1)
  - Cholecystitis acute [Recovered/Resolved]

NARRATIVE: CASE EVENT DATE: 20230322
